FAERS Safety Report 8599330-1 (Version None)
Quarter: 2012Q3

REPORT INFORMATION
  Report Type: 
  Country: None (occurrence: None)
  Receive Date: 20120816
  Receipt Date: 20110929
  Transmission Date: 20120928
  Serious: No
  Sender: FDA-Public Use
  Company Number: US-AMGEN-USASP2011050442

PATIENT
  Sex: Male

DRUGS (2)
  1. NEUPOGEN [Suspect]
     Dosage: 480 MUG, UNK
  2. XGEVA [Suspect]
     Indication: PROSTATE CANCER METASTATIC
     Dosage: 120 MG, Q4WK

REACTIONS (1)
  - BONE PAIN [None]
